FAERS Safety Report 10904514 (Version 2)
Quarter: 2018Q1

REPORT INFORMATION
  Report Type: Spontaneous
  Country: GB (occurrence: GB)
  Receive Date: 20150311
  Receipt Date: 20180313
  Transmission Date: 20180508
  Serious: Yes (Hospitalization, Other)
  Sender: FDA-Public Use
  Company Number: GB-CIPLA LTD.-2015GB01737

PATIENT

DRUGS (8)
  1. ENTACAPONE. [Suspect]
     Active Substance: ENTACAPONE
     Dosage: UNK
     Route: 065
  2. FINASTERIDE. [Suspect]
     Active Substance: FINASTERIDE
     Indication: PRODUCT USED FOR UNKNOWN INDICATION
     Dosage: 5 MG, UNK
     Route: 065
  3. LEVODOPA [Suspect]
     Active Substance: LEVODOPA
     Dosage: UNK
     Route: 065
  4. ALFUZOSIN [Suspect]
     Active Substance: ALFUZOSIN
     Indication: PRODUCT USED FOR UNKNOWN INDICATION
     Dosage: 10 MG, UNK
     Route: 065
  5. APOMORPHINE [Suspect]
     Active Substance: APOMORPHINE
     Indication: PRODUCT USED FOR UNKNOWN INDICATION
     Dosage: TAKEN FOR 3 YEARS, 3.5 MG/HOUR DAY; 2.5 MG/HOUR NIGHT
     Route: 065
     Dates: start: 2012
  6. CARBIDOPA. [Suspect]
     Active Substance: CARBIDOPA
     Indication: PRODUCT USED FOR UNKNOWN INDICATION
     Dosage: 150 MG, FIVE TIMES A DAY
     Route: 065
  7. AMANTADINE. [Suspect]
     Active Substance: AMANTADINE HYDROCHLORIDE
     Indication: PRODUCT USED FOR UNKNOWN INDICATION
     Dosage: 200/100 MG, UNK
     Route: 065
  8. MIRTAZAPINE. [Suspect]
     Active Substance: MIRTAZAPINE
     Indication: PRODUCT USED FOR UNKNOWN INDICATION
     Dosage: 30 MG, QD IN EVENING
     Route: 065

REACTIONS (13)
  - Illusion [Unknown]
  - Soft tissue mass [Unknown]
  - Skin haemorrhage [Unknown]
  - Depressed mood [Unknown]
  - Rash [Unknown]
  - Formication [Unknown]
  - Sensory disturbance [Unknown]
  - On and off phenomenon [Unknown]
  - Hallucination, visual [Unknown]
  - Pelvic fracture [Unknown]
  - Nasal discomfort [Unknown]
  - Oral discomfort [Not Recovered/Not Resolved]
  - Fall [Unknown]
